FAERS Safety Report 6874847-6 (Version None)
Quarter: 2010Q2

REPORT INFORMATION
  Report Type: 
  Country: None (occurrence: None)
  Receive Date: 20100610
  Receipt Date: 20100415
  Transmission Date: 20101027
  Serious: No
  Sender: FDA-Public Use
  Company Number: 2010SP022154

PATIENT
  Age: 54 Year
  Sex: Female

DRUGS (16)
  1. SAPHRIS [Suspect]
     Indication: DRUG USE FOR UNKNOWN INDICATION
     Dosage: 5 MG;BID;SL; 5 MG; QD; SL
     Dates: start: 20100401, end: 20100401
  2. SAPHRIS [Suspect]
     Indication: DRUG USE FOR UNKNOWN INDICATION
     Dosage: 5 MG;BID;SL; 5 MG; QD; SL
     Dates: start: 20100408
  3. CITALOPRAM HYDROBROMIDE [Concomitant]
  4. CLONAZEPAM [Concomitant]
  5. IBUPROFEN TABLETS [Concomitant]
  6. LUNESTA [Concomitant]
  7. ALBUTEROL SULATE [Concomitant]
  8. BYETTA [Concomitant]
  9. CALTRATE WITH D [Concomitant]
  10. LOTREL [Concomitant]
  11. MELOXICAM [Concomitant]
  12. METFORMIN HCL [Concomitant]
  13. METOPROLOL TARTRATE [Concomitant]
  14. MUCINEX [Concomitant]
  15. PREVACID [Concomitant]
  16. SYMBOCORT [Concomitant]

REACTIONS (3)
  - DYSPNOEA [None]
  - INAPPROPRIATE SCHEDULE OF DRUG ADMINISTRATION [None]
  - UNDERDOSE [None]
